FAERS Safety Report 11292650 (Version 1)
Quarter: 2015Q3

REPORT INFORMATION
  Report Type: Spontaneous
  Country: US (occurrence: US)
  Receive Date: 20150722
  Receipt Date: 20150722
  Transmission Date: 20151125
  Serious: Yes (Hospitalization, Other)
  Sender: FDA-Public Use
  Company Number: US-UNITED THERAPEUTICS-UNT-2015-008668

PATIENT
  Sex: Female

DRUGS (1)
  1. REMODULIN [Suspect]
     Active Substance: TREPROSTINIL
     Indication: PULMONARY ARTERIAL HYPERTENSION
     Dosage: 0.060 ?G/KG, Q48H
     Route: 041
     Dates: start: 201203

REACTIONS (7)
  - Nasal congestion [Unknown]
  - Pneumonia [Unknown]
  - Drug dose omission [Recovered/Resolved]
  - Productive cough [Unknown]
  - Pyrexia [Unknown]
  - Chills [Unknown]
  - Device leakage [Recovered/Resolved]

NARRATIVE: CASE EVENT DATE: 201507
